FAERS Safety Report 20535413 (Version 2)
Quarter: 2022Q1

REPORT INFORMATION
  Report Type: Report from Study
  Country: CA (occurrence: CA)
  Receive Date: 20220302
  Receipt Date: 20220328
  Transmission Date: 20220423
  Serious: Yes (Other)
  Sender: FDA-Public Use
  Company Number: CA-JNJFOC-20210852235

PATIENT
  Age: 30 Year
  Sex: Female

DRUGS (6)
  1. REMICADE [Suspect]
     Active Substance: INFLIXIMAB
     Indication: Rheumatoid arthritis
     Dosage: ON 02-OCT-2021, THE PATIENT RECEIVED REMICADE INFUSION.
     Route: 042
     Dates: start: 20170530, end: 20211002
  2. HYDROCORTISONE [Concomitant]
     Active Substance: HYDROCORTISONE
     Indication: Premedication
     Dosage: HYDROCORTISONE 125MG IV,
     Route: 042
     Dates: start: 20211002
  3. HYDROCORTISONE [Concomitant]
     Active Substance: HYDROCORTISONE
     Route: 042
     Dates: start: 20211002
  4. BENADRYL [Concomitant]
     Active Substance: DIPHENHYDRAMINE HYDROCHLORIDE
     Indication: Premedication
     Dosage: BENADRYL 50MG PO PER ORDER.
     Route: 048
     Dates: start: 20211002
  5. BENADRYL [Concomitant]
     Active Substance: DIPHENHYDRAMINE HYDROCHLORIDE
     Route: 042
     Dates: start: 20211002
  6. BENADRYL [Concomitant]
     Active Substance: DIPHENHYDRAMINE HYDROCHLORIDE
     Dosage: BENADRYL 50MG PO PER ORDER.
     Route: 048
     Dates: start: 20211002

REACTIONS (10)
  - Sensation of foreign body [Recovering/Resolving]
  - Infusion related reaction [Recovering/Resolving]
  - Oral discomfort [Recovering/Resolving]
  - Eye pruritus [Recovering/Resolving]
  - Tongue discomfort [Unknown]
  - Lip erythema [Recovering/Resolving]
  - Conjunctivitis [Recovering/Resolving]
  - Off label use [Unknown]
  - Product use issue [Unknown]
  - Incorrect drug administration rate [Unknown]

NARRATIVE: CASE EVENT DATE: 20211002
